FAERS Safety Report 24817638 (Version 4)
Quarter: 2025Q2

REPORT INFORMATION
  Report Type: Report from Study
  Country: US (occurrence: US)
  Receive Date: 20250108
  Receipt Date: 20250401
  Transmission Date: 20250717
  Serious: No
  Sender: SANDOZ
  Company Number: US-SANDOZ-SDZ2025US000178

PATIENT
  Age: 11 Year
  Sex: Female

DRUGS (4)
  1. OMNITROPE [Suspect]
     Active Substance: SOMATROPIN
     Dosage: 5 MG/ML (0.32 ML(MILILITRE))
     Route: 058
     Dates: start: 20250107
  2. OMNITROPE [Suspect]
     Active Substance: SOMATROPIN
     Dosage: 5 MG/ML (0.32 ML(MILILITRE))
     Route: 058
     Dates: start: 20250107
  3. OMNITROPE [Suspect]
     Active Substance: SOMATROPIN
     Indication: Short stature
     Route: 065
  4. OMNITROPE [Suspect]
     Active Substance: SOMATROPIN
     Indication: Short stature
     Route: 065

REACTIONS (11)
  - Injection site induration [Recovered/Resolved]
  - Injection site pain [Unknown]
  - Headache [Not Recovered/Not Resolved]
  - Product dispensing error [Unknown]
  - Incorrect dose administered [Unknown]
  - Product preparation issue [Unknown]
  - Product dose omission issue [Unknown]
  - Incorrect dose administered by device [Unknown]
  - Product colour issue [Unknown]
  - Product quality issue [Unknown]
  - Product physical issue [Unknown]

NARRATIVE: CASE EVENT DATE: 20250107
